FAERS Safety Report 5812577-X (Version None)
Quarter: 2008Q3

REPORT INFORMATION
  Report Type: 
  Country: None (occurrence: None)
  Receive Date: 20080717
  Receipt Date: 20080709
  Transmission Date: 20090109
  Serious: Yes (Death, Other)
  Sender: FDA-Public Use
  Company Number: US-ALLERGAN-0808501US

PATIENT
  Sex: Male

DRUGS (2)
  1. BOTOX [Suspect]
     Indication: DRUG USE FOR UNKNOWN INDICATION
     Dosage: UNK, SINGLE
     Dates: start: 20080201, end: 20080201
  2. BOTOX [Suspect]
     Dosage: UNK, SINGLE
     Dates: start: 20080301, end: 20080301

REACTIONS (3)
  - DYSPHAGIA [None]
  - DYSPHONIA [None]
  - PNEUMONIA ASPIRATION [None]
